FAERS Safety Report 6576288-8 (Version None)
Quarter: 2010Q1

REPORT INFORMATION
  Report Type: 
  Country: None (occurrence: None)
  Receive Date: 20100210
  Receipt Date: 20100203
  Transmission Date: 20100710
  Serious: Yes (Hospitalization)
  Sender: FDA-Public Use
  Company Number: US-BIOGENIDEC-2009BI042141

PATIENT
  Age: 59 Year
  Sex: Female
  Weight: 90 kg

DRUGS (18)
  1. TYSABRI [Suspect]
     Indication: MULTIPLE SCLEROSIS
     Route: 042
     Dates: start: 20090917
  2. AMANTADINE HCL [Concomitant]
     Route: 048
  3. AMITRIPTYLINE HCL [Concomitant]
     Route: 048
  4. BETAMETHASONE DIPROPIONATE [Concomitant]
     Route: 061
  5. EFFEXOR [Concomitant]
     Route: 048
  6. METFORMIN HCL [Concomitant]
     Route: 048
  7. MIDRIN [Concomitant]
  8. NEXIUM [Concomitant]
     Route: 048
  9. NITROGLYCERIN SL [Concomitant]
     Route: 060
  10. PRILOSEC [Concomitant]
     Route: 048
  11. PROVIGIL [Concomitant]
     Route: 048
  12. QVAR 40 [Concomitant]
     Route: 055
  13. RAMIPRIL [Concomitant]
     Route: 048
  14. SINGULAIR [Concomitant]
     Route: 048
  15. SPIRIVA [Concomitant]
     Route: 055
  16. VENTOLIN [Concomitant]
     Route: 055
  17. VYTORIN [Concomitant]
     Route: 048
  18. WARFARIN SODIUM [Concomitant]
     Route: 048

REACTIONS (14)
  - ABNORMAL DREAMS [None]
  - ACUTE RESPIRATORY FAILURE [None]
  - CARDIAC FAILURE CONGESTIVE [None]
  - DYSPNOEA [None]
  - FALL [None]
  - HYPOAESTHESIA [None]
  - LOSS OF CONSCIOUSNESS [None]
  - MEMORY IMPAIRMENT [None]
  - MULTIPLE SCLEROSIS RELAPSE [None]
  - MUSCULAR WEAKNESS [None]
  - PNEUMONIA BACTERIAL [None]
  - PNEUMONIA FUNGAL [None]
  - RENAL FAILURE ACUTE [None]
  - URINARY TRACT DISORDER [None]
